FAERS Safety Report 14690878 (Version 1)
Quarter: 2018Q1

REPORT INFORMATION
  Report Type: Report from Study
  Country: US (occurrence: US)
  Receive Date: 20180328
  Receipt Date: 20180328
  Transmission Date: 20180509
  Serious: Yes (Other)
  Sender: FDA-Public Use
  Company Number: US-MYLANLABS-2018M1018544

PATIENT
  Age: 20 Year
  Sex: Female

DRUGS (2)
  1. HEPARIN [Suspect]
     Active Substance: HEPARIN SODIUM
     Indication: INJURY
     Dosage: 10000 UNITS/ML DILUTED WITH 2 ML 0.9% NACL TO TOTAL VOLUME OF 3 ML NEBULIZED, EVERY FOUR HOURS.
     Route: 055
  2. NACL [Concomitant]
     Active Substance: SODIUM CHLORIDE
     Indication: INJURY
     Route: 055

REACTIONS (2)
  - Pulmonary alveolar haemorrhage [Unknown]
  - Off label use [Unknown]
